FAERS Safety Report 9815324 (Version 2)
Quarter: 2014Q2

REPORT INFORMATION
  Report Type: Spontaneous
  Country: FR (occurrence: FR)
  Receive Date: 20140114
  Receipt Date: 20140606
  Transmission Date: 20141212
  Serious: Yes (Other)
  Sender: FDA-Public Use
  Company Number: FR-ROCHE-1332011

PATIENT
  Sex: Female
  Weight: 50.08 kg

DRUGS (10)
  1. LUCENTIS [Suspect]
     Indication: AGE-RELATED MACULAR DEGENERATION
     Route: 050
     Dates: start: 20110928
  2. LUCENTIS [Suspect]
     Route: 050
     Dates: start: 201110
  3. LUCENTIS [Suspect]
     Route: 050
     Dates: start: 20131227, end: 20131227
  4. LOSARTAN POTASSIUM [Concomitant]
  5. ALDACTAZINE [Concomitant]
     Dosage: DOSAGE WAS DOUBLED
     Route: 065
  6. SIMVASTATIN [Concomitant]
  7. TANGANIL [Concomitant]
  8. CACIT (FRANCE) [Concomitant]
  9. PANFUREX [Concomitant]
  10. DEBRIDAT [Concomitant]

REACTIONS (3)
  - Blood pressure inadequately controlled [Recovered/Resolved]
  - Macular oedema [Unknown]
  - Visual acuity reduced [Unknown]
